FAERS Safety Report 23074187 (Version 6)
Quarter: 2024Q1

REPORT INFORMATION
  Report Type: Spontaneous
  Country: US (occurrence: US)
  Receive Date: 20231017
  Receipt Date: 20240117
  Transmission Date: 20240410
  Serious: No
  Sender: FDA-Public Use
  Company Number: US-PFIZER INC-PV202300161853

PATIENT
  Age: 10 Year
  Sex: Male
  Weight: 27.12 kg

DRUGS (2)
  1. GENOTROPIN [Suspect]
     Active Substance: SOMATROPIN
     Indication: Short stature
     Dosage: 1.4 MG, DAILY
     Dates: start: 202303, end: 20230925
  2. GENOTROPIN [Suspect]
     Active Substance: SOMATROPIN
     Indication: Silver-Russell syndrome

REACTIONS (3)
  - Drug dose omission by device [Unknown]
  - Device mechanical issue [Unknown]
  - Device physical property issue [Unknown]

NARRATIVE: CASE EVENT DATE: 20230923
